FAERS Safety Report 6728742-3 (Version None)
Quarter: 2010Q2

REPORT INFORMATION
  Report Type: 
  Country: None (occurrence: None)
  Receive Date: 20100517
  Receipt Date: 20100513
  Transmission Date: 20101027
  Serious: Yes (Hospitalization, Other)
  Sender: FDA-Public Use
  Company Number: US-MERCK-0807USA03750

PATIENT
  Age: 57 Year
  Sex: Male
  Weight: 84 kg

DRUGS (8)
  1. FOSAMAX [Suspect]
     Indication: OSTEOPOROSIS
     Route: 048
     Dates: start: 20010101, end: 20010101
  2. FOSAMAX [Suspect]
     Route: 048
     Dates: start: 20010101, end: 20010322
  3. [THERAPY UNSPECIFIED] [Concomitant]
     Indication: DIABETES MELLITUS
     Route: 065
     Dates: start: 19980101
  4. AREDIA [Suspect]
     Indication: OSTEOPOROSIS
     Route: 041
     Dates: start: 20001206, end: 20020101
  5. ZOMETA [Suspect]
     Route: 065
     Dates: start: 20020101, end: 20020801
  6. MIACALCIN [Concomitant]
     Indication: OSTEOPOROSIS
     Route: 055
     Dates: start: 20010101, end: 20010322
  7. CALCIUM (UNSPECIFIED) [Concomitant]
     Indication: OSTEOPOROSIS
     Route: 065
     Dates: start: 20010101
  8. PERCOCET [Concomitant]
     Route: 065
     Dates: start: 19960101, end: 20040101

REACTIONS (55)
  - ADVERSE DRUG REACTION [None]
  - ANAEMIA MACROCYTIC [None]
  - ARTHRALGIA [None]
  - BACK PAIN [None]
  - BLADDER CANCER [None]
  - BLOOD CREATINE PHOSPHOKINASE MB INCREASED [None]
  - BLOOD GLUCOSE INCREASED [None]
  - BLOOD PRESSURE INCREASED [None]
  - BONE PAIN [None]
  - BRONCHITIS CHRONIC [None]
  - CARDIAC ENZYMES INCREASED [None]
  - CARDIAC FAILURE CONGESTIVE [None]
  - COMPRESSION FRACTURE [None]
  - CONSTIPATION [None]
  - CORONARY ARTERY DISEASE [None]
  - DEAFNESS [None]
  - DEHYDRATION [None]
  - DEPRESSION [None]
  - DIABETES MELLITUS INADEQUATE CONTROL [None]
  - DIABETIC GASTROPARESIS [None]
  - DRUG ADMINISTRATION ERROR [None]
  - DRUG HYPERSENSITIVITY [None]
  - DYSAESTHESIA [None]
  - DYSLIPIDAEMIA [None]
  - DYSPHAGIA [None]
  - EJECTION FRACTION DECREASED [None]
  - GALLBLADDER DISORDER [None]
  - GASTRODUODENITIS [None]
  - GASTROOESOPHAGEAL REFLUX DISEASE [None]
  - HIATUS HERNIA [None]
  - HYPERKALAEMIA [None]
  - INTERVERTEBRAL DISC DEGENERATION [None]
  - INTERVERTEBRAL DISC PROTRUSION [None]
  - JAW DISORDER [None]
  - MYOCARDIAL INFARCTION [None]
  - NASAL CONGESTION [None]
  - NAUSEA [None]
  - NEUROPATHY PERIPHERAL [None]
  - OSTEOARTHRITIS [None]
  - OSTEOMYELITIS [None]
  - OSTEONECROSIS OF JAW [None]
  - OVERDOSE [None]
  - PAIN OF SKIN [None]
  - PERONEAL NERVE PALSY [None]
  - PROCEDURAL COMPLICATION [None]
  - PULMONARY MASS [None]
  - RADICULOPATHY [None]
  - RHINITIS ALLERGIC [None]
  - SCOLIOSIS [None]
  - SINUS DISORDER [None]
  - SOMNOLENCE [None]
  - SPONDYLITIS [None]
  - TOOTH DISORDER [None]
  - VOMITING [None]
  - WITHDRAWAL SYNDROME [None]
